FAERS Safety Report 6166878-9 (Version None)
Quarter: 2009Q2

REPORT INFORMATION
  Report Type: 
  Country: None (occurrence: None)
  Receive Date: 20090424
  Receipt Date: 20090416
  Transmission Date: 20091009
  Serious: Yes (Hospitalization)
  Sender: FDA-Public Use
  Company Number: A0780348A

PATIENT
  Sex: Female

DRUGS (1)
  1. TYKERB [Suspect]
     Route: 048
     Dates: end: 20090412

REACTIONS (2)
  - DYSPHAGIA [None]
  - MALIGNANT NEOPLASM PROGRESSION [None]
